FAERS Safety Report 17531902 (Version 1)
Quarter: 2020Q1

REPORT INFORMATION
  Report Type: Spontaneous
  Country: SE (occurrence: SE)
  Receive Date: 20200312
  Receipt Date: 20200312
  Transmission Date: 20200409
  Serious: Yes (Other)
  Sender: FDA-Public Use
  Company Number: SE-JNJFOC-20200306827

PATIENT
  Age: 33 Year
  Sex: Female
  Weight: 64 kg

DRUGS (2)
  1. IBUPROFEN. [Suspect]
     Active Substance: IBUPROFEN
     Indication: DYSMENORRHOEA
     Dosage: MAX DOSE ACCORDING TO PACKAGE LEAFLET FOR ABOUT 2/3 DAYS
     Route: 065
     Dates: start: 20200219, end: 20200220
  2. ALVEDON [Suspect]
     Active Substance: ACETAMINOPHEN
     Indication: DYSMENORRHOEA
     Dosage: MAX DOSE ACCORDING TO PACKAGE LEAFLET FOR ABOUT 2/3 DAYS
     Route: 065
     Dates: start: 20200219, end: 20200220

REACTIONS (1)
  - Tinnitus [Recovered/Resolved]

NARRATIVE: CASE EVENT DATE: 20200220
